FAERS Safety Report 5479174-X (Version None)
Quarter: 2007Q4

REPORT INFORMATION
  Report Type: 
  Country: None (occurrence: None)
  Receive Date: 20071008
  Receipt Date: 20071001
  Transmission Date: 20080405
  Serious: Yes (Death)
  Sender: FDA-Public Use
  Company Number: US-ELI_LILLY_AND_COMPANY-US200710000100

PATIENT
  Sex: Male

DRUGS (5)
  1. ZYPREXA [Suspect]
     Indication: SCHIZOAFFECTIVE DISORDER
     Dosage: 20 MG, DAILY (1/D)
     Dates: start: 20000101
  2. LITHIUM [Concomitant]
     Dosage: 600 MG, UNK
  3. LAMICTAL [Concomitant]
     Dosage: 300 MG, UNK
  4. CELEXA [Concomitant]
     Dosage: 40 MG, UNK
  5. ZOLOFT [Concomitant]

REACTIONS (1)
  - COMPLETED SUICIDE [None]
